FAERS Safety Report 17511288 (Version 1)
Quarter: 2020Q1

REPORT INFORMATION
  Report Type: Spontaneous
  Country: DE (occurrence: DE)
  Receive Date: 20200306
  Receipt Date: 20200306
  Transmission Date: 20200409
  Serious: Yes (Life-Threatening)
  Sender: FDA-Public Use
  Company Number: DE-ANIPHARMA-2020-DE-000038

PATIENT
  Sex: Female
  Weight: 83 kg

DRUGS (4)
  1. PANTOPRAZOLE [Suspect]
     Active Substance: PANTOPRAZOLE
     Dosage: UNK
     Route: 065
     Dates: start: 2010
  2. ELONTRIL [Suspect]
     Active Substance: BUPROPION HYDROCHLORIDE
     Dosage: UNK
     Route: 065
     Dates: start: 2010
  3. METOPROLOL. [Suspect]
     Active Substance: METOPROLOL
     Dosage: UNK
     Route: 048
     Dates: start: 2010
  4. CANDESARTAN. [Suspect]
     Active Substance: CANDESARTAN
     Indication: PRODUCT USED FOR UNKNOWN INDICATION
     Dosage: UNK
     Route: 048
     Dates: start: 2010

REACTIONS (5)
  - Dyspnoea [Unknown]
  - Thrombosis [Unknown]
  - Pulmonary embolism [Unknown]
  - Muscular weakness [Unknown]
  - Discomfort [Unknown]

NARRATIVE: CASE EVENT DATE: 20190104
